FAERS Safety Report 8993197 (Version 1)
Quarter: 2013Q1

REPORT INFORMATION
  Report Type: Spontaneous
  Country: US (occurrence: US)
  Receive Date: 20130102
  Receipt Date: 20130102
  Transmission Date: 20140127
  Serious: Yes (Other)
  Sender: FDA-Public Use
  Company Number: US-JNJFOC-20121213723

PATIENT
  Age: 57 Year
  Sex: Female
  Weight: 56.7 kg

DRUGS (3)
  1. XARELTO [Suspect]
     Indication: DEEP VEIN THROMBOSIS
     Route: 048
     Dates: start: 20121219, end: 20121225
  2. XELODA [Concomitant]
     Indication: BREAST CANCER METASTATIC
     Route: 065
     Dates: start: 201208
  3. TYKERB [Concomitant]
     Indication: BREAST CANCER METASTATIC
     Route: 065
     Dates: start: 201208

REACTIONS (1)
  - Chromaturia [Recovering/Resolving]
